FAERS Safety Report 4595345-9 (Version None)
Quarter: 2005Q1

REPORT INFORMATION
  Report Type: 
  Country: None (occurrence: None)
  Receive Date: 20050225
  Receipt Date: 20050225
  Transmission Date: 20050727
  Serious: No
  Sender: FDA-Public Use
  Company Number: None

PATIENT
  Sex: Female
  Weight: 59.8748 kg

DRUGS (1)
  1. ELIDEL [Suspect]
     Indication: ROSACEA
     Dosage: DAILY    TOPICAL
     Route: 061
     Dates: start: 20020402, end: 20050212

REACTIONS (1)
  - SKIN CANCER [None]
